FAERS Safety Report 15017980 (Version 3)
Quarter: 2019Q2

REPORT INFORMATION
  Report Type: Spontaneous
  Country: PT (occurrence: PT)
  Receive Date: 20180615
  Receipt Date: 20190405
  Transmission Date: 20190711
  Serious: Yes (Life-Threatening, Other)
  Sender: FDA-Public Use
  Company Number: PT-MYLANLABS-2018M1043909

PATIENT
  Sex: Male
  Weight: .58 kg

DRUGS (8)
  1. AMIKACIN. [Suspect]
     Active Substance: AMIKACIN
     Indication: SEPSIS NEONATAL
     Dosage: SYSTEMIC
  2. VANCOMYCIN [Concomitant]
     Active Substance: VANCOMYCIN
     Indication: NECROTISING COLITIS
     Dosage: UNK
  3. CEFOTAXIME [Concomitant]
     Active Substance: CEFOTAXIME SODIUM
     Indication: NECROTISING COLITIS
  4. AMIKACIN. [Suspect]
     Active Substance: AMIKACIN
     Indication: NECROTISING COLITIS
     Dosage: SYSTEMIC
  5. DEXAMETHASONE. [Suspect]
     Active Substance: DEXAMETHASONE
     Indication: PRODUCT USED FOR UNKNOWN INDICATION
     Dosage: SYSTEMIC
  6. CEFOTAXIME [Concomitant]
     Active Substance: CEFOTAXIME SODIUM
     Indication: SEPSIS NEONATAL
     Dosage: UNK
  7. VANCOMYCIN [Concomitant]
     Active Substance: VANCOMYCIN
     Indication: SEPSIS NEONATAL
     Dosage: UNK
  8. METRONIDAZOLE. [Concomitant]
     Active Substance: METRONIDAZOLE
     Indication: NECROTISING COLITIS

REACTIONS (2)
  - Drug ineffective [Unknown]
  - Off label use [Unknown]
